FAERS Safety Report 8227788-6 (Version None)
Quarter: 2012Q1

REPORT INFORMATION
  Report Type: 
  Country: None (occurrence: None)
  Receive Date: 20120322
  Receipt Date: 20120320
  Transmission Date: 20120608
  Serious: No
  Sender: FDA-Public Use
  Company Number: US-BAYER-2012-027551

PATIENT
  Age: 60 Year
  Sex: Male

DRUGS (7)
  1. GLUCOVANCE [Concomitant]
  2. RYTHMOL [Concomitant]
  3. MULTI-VITAMIN [Concomitant]
  4. VARDENAFIL HYDROCHLORIDE (LEVITRA) [Suspect]
     Indication: ERECTILE DYSFUNCTION
     Dosage: 20 MG, UNK
     Route: 048
     Dates: end: 20111001
  5. ASPIRIN [Concomitant]
  6. LORTAB [Concomitant]
  7. HYDAZOLE [Concomitant]

REACTIONS (1)
  - HEART RATE INCREASED [None]
